FAERS Safety Report 8479762-2 (Version None)
Quarter: 2012Q2

REPORT INFORMATION
  Report Type: 
  Country: None (occurrence: None)
  Receive Date: 20120620
  Receipt Date: 20120608
  Transmission Date: 20120825
  Serious: Yes (Other)
  Sender: FDA-Public Use
  Company Number: DSA_57909_2012

PATIENT

DRUGS (6)
  1. ALL OTHER THERAPEUTIC PRODUCTS [Concomitant]
  2. DOXORUBICIN HCL [Suspect]
     Indication: OESOPHAGEAL CARCINOMA
     Dosage: (35MG/M2, EVERY CYCLE INTRAVENOUS (NOT OTHERWISE SPECIFIED)
     Route: 042
  3. FLUOROURACIL [Suspect]
     Indication: OESOPHAGEAL CARCINOMA
     Dosage: (700MG/M2; DAILY INTRAVENOUS (NOT OTHERWISE SPECIFIED)
     Route: 042
  4. ANTIEMETICS AND ANTINAUSEANTS [Concomitant]
  5. CISPLATIN [Suspect]
     Indication: OESOPHAGEAL CARCINOMA
     Dosage: (70MG/M2 EVERY CYCLE INTRAVENOUS (NOT OTHERWISE SPECIFIED)
     Route: 042
  6. I.V. SOLUTIONS [Concomitant]

REACTIONS (1)
  - LEUKOPENIA [None]
